FAERS Safety Report 16289585 (Version 1)
Quarter: 2019Q2

REPORT INFORMATION
  Report Type: Spontaneous
  Country: US (occurrence: US)
  Receive Date: 20190508
  Receipt Date: 20190508
  Transmission Date: 20190711
  Serious: Yes (Disabling, Other)
  Sender: FDA-Public Use
  Company Number: None

PATIENT
  Age: 18 Year
  Sex: Female
  Weight: 48.87 kg

DRUGS (1)
  1. PURELAX [Suspect]
     Active Substance: POLYETHYLENE GLYCOL 3350
     Indication: GASTROINTESTINAL DISORDER
     Dosage: ?          QUANTITY:0.5 CAP;?
     Route: 048
     Dates: start: 20190118, end: 20190124

REACTIONS (2)
  - Headache [None]
  - Anal incontinence [None]

NARRATIVE: CASE EVENT DATE: 20190118
